FAERS Safety Report 13051710 (Version 2)
Quarter: 2017Q1

REPORT INFORMATION
  Report Type: Spontaneous
  Country: US (occurrence: US)
  Receive Date: 20161221
  Receipt Date: 20170227
  Transmission Date: 20170428
  Serious: No
  Sender: FDA-Public Use
  Company Number: US-PFIZER INC-2016370475

PATIENT
  Age: 70 Year
  Sex: Female
  Weight: 77.98 kg

DRUGS (8)
  1. LYRICA [Suspect]
     Active Substance: PREGABALIN
     Indication: EPILEPSY
     Dosage: 100 MG, UNK
     Route: 048
  2. TRILEPTAL [Concomitant]
     Active Substance: OXCARBAZEPINE
     Indication: EPILEPSY
     Dosage: 2 TABLETS OF 150 MG (300 MG), THREE TIMES PER DAY
     Dates: start: 201510
  3. LYRICA [Suspect]
     Active Substance: PREGABALIN
     Indication: SEIZURE
     Dosage: 50 MG, UNK
     Route: 048
     Dates: start: 201510
  4. LYRICA [Suspect]
     Active Substance: PREGABALIN
     Dosage: 100MG THREE CAPSULES A DAY
     Route: 048
     Dates: start: 2016
  5. LYRICA [Suspect]
     Active Substance: PREGABALIN
     Dosage: 100MG FOUR CAPSULES A DAY
     Route: 048
  6. LYRICA [Suspect]
     Active Substance: PREGABALIN
     Dosage: 100 MG, 3X/DAY (1 CAP IN AM, 1 CAP IN MIDDAY AND 1 CAP IN PM)
     Dates: start: 20170130
  7. TRILEPTAL [Concomitant]
     Active Substance: OXCARBAZEPINE
     Dosage: 300 MG, 3X/DAY
  8. LYRICA [Suspect]
     Active Substance: PREGABALIN
     Dosage: 100 MG, 6 TIMES PER DAY
     Route: 048
     Dates: start: 201607, end: 201607

REACTIONS (4)
  - Ligament sprain [Unknown]
  - Chest pain [Unknown]
  - Intercepted drug prescribing error [Unknown]
  - Drug effect incomplete [Unknown]
